FAERS Safety Report 6196018-1 (Version None)
Quarter: 2009Q2

REPORT INFORMATION
  Report Type: 
  Country: None (occurrence: None)
  Receive Date: 20090520
  Receipt Date: 20050531
  Transmission Date: 20091009
  Serious: Yes (Death)
  Sender: FDA-Public Use
  Company Number: NL-ROCHE-598424

PATIENT
  Sex: Female

DRUGS (4)
  1. CAPECITABINE [Suspect]
     Route: 048
     Dates: start: 20050426, end: 20050517
  2. TRAMADOL HCL [Concomitant]
     Dosage: DOSE 2 X 50MG.
     Route: 048
  3. BUSCOPAN [Concomitant]
     Dosage: DOSE 2 X 10MG.
     Route: 048
  4. FRAXIPARINE [Concomitant]
     Dosage: DOSE 1 X 0.6ML

REACTIONS (1)
  - COLON CANCER [None]
